FAERS Safety Report 4954234-8 (Version None)
Quarter: 2006Q1

REPORT INFORMATION
  Report Type: 
  Country: None (occurrence: None)
  Receive Date: 20060327
  Receipt Date: 20040901
  Transmission Date: 20060701
  Serious: Yes (Other)
  Sender: FDA-Public Use
  Company Number: DE-BRISTOL-MYERS SQUIBB COMPANY-13305719

PATIENT
  Age: 40 Year
  Sex: Male

DRUGS (10)
  1. REYATAZ [Suspect]
     Indication: HIV INFECTION
     Dates: start: 20040601
  2. SUSTIVA [Suspect]
     Indication: HIV INFECTION
     Dates: start: 20030130, end: 20030131
  3. VIDEX [Suspect]
     Indication: HIV INFECTION
     Dosage: STOPPED 02-DEC-2003, RESTARTED 08-JAN-2004, STOPPED AND RESTARTED IN JUN-2004
     Dates: start: 20030130
  4. ZIDOVUDINE [Concomitant]
     Indication: HIV INFECTION
     Dosage: STOPPED 14-AUG-1996, STARTED 15-AUG-1996,
     Dates: start: 19940515, end: 20030130
  5. LAMIVUDINE [Concomitant]
     Indication: HIV INFECTION
     Dates: start: 19960815, end: 20030130
  6. INDINIVIR SULFATE [Concomitant]
     Indication: HIV INFECTION
     Dates: start: 19960815, end: 20030130
  7. RITONAVIR [Concomitant]
     Indication: HIV INFECTION
     Dosage: STOPPED 30-JAN-2003, RESTARTED 08-JAN-2004, STOPPED AND RESTARTED JUN-2004
     Dates: start: 19960815
  8. TENOFOVIR [Concomitant]
     Indication: HIV INFECTION
     Dosage: STOPPED 02-DEC-2003, RESTARTED 08-JAN-2004, STOPPED AND RESTARTED IN JUN-2004
     Dates: start: 20030130
  9. NEVIRAPINE [Concomitant]
     Indication: HIV INFECTION
     Dates: start: 20030131, end: 20031202
  10. LOPINAVIR [Concomitant]
     Indication: HIV INFECTION
     Dates: start: 20040108

REACTIONS (6)
  - GASTROINTESTINAL DISORDER [None]
  - IMPAIRED WORK ABILITY [None]
  - NAUSEA [None]
  - RETROVIRAL INFECTION [None]
  - SYPHILIS [None]
  - TRANSAMINASES INCREASED [None]
